FAERS Safety Report 7560256-3 (Version None)
Quarter: 2011Q2

REPORT INFORMATION
  Report Type: 
  Country: None (occurrence: None)
  Receive Date: 20110621
  Receipt Date: 20110617
  Transmission Date: 20111010
  Serious: Yes (Other)
  Sender: FDA-Public Use
  Company Number: US-PFIZER INC-2011134225

PATIENT
  Sex: Female

DRUGS (1)
  1. SEPTRA [Suspect]
     Indication: FURUNCLE
     Dosage: UNK

REACTIONS (10)
  - FATIGUE [None]
  - OEDEMA PERIPHERAL [None]
  - DIARRHOEA [None]
  - NAUSEA [None]
  - CONDITION AGGRAVATED [None]
  - AORTIC STENOSIS [None]
  - DYSPNOEA [None]
  - BEDRIDDEN [None]
  - FEELING ABNORMAL [None]
  - DIZZINESS [None]
